FAERS Safety Report 12889031 (Version 3)
Quarter: 2017Q1

REPORT INFORMATION
  Report Type: Report from Study
  Country: US (occurrence: US)
  Receive Date: 20161027
  Receipt Date: 20170123
  Transmission Date: 20170428
  Serious: Yes (Death, Hospitalization)
  Sender: FDA-Public Use
  Company Number: PHEH2016US027865

PATIENT
  Age: 75 Year
  Sex: Male

DRUGS (9)
  1. LORAZEPAM. [Concomitant]
     Active Substance: LORAZEPAM
     Indication: PAIN
     Dosage: 1 DF, PRN
     Route: 042
     Dates: start: 20161006
  2. MORPHINE SULFATE. [Concomitant]
     Active Substance: MORPHINE SULFATE
     Indication: DYSPNOEA
  3. VOTRIENT [Suspect]
     Active Substance: PAZOPANIB HYDROCHLORIDE
     Indication: SARCOMA
     Dosage: 200 MG, TID
     Route: 048
     Dates: start: 20151123, end: 20160907
  4. OXYGEN. [Concomitant]
     Active Substance: OXYGEN
     Indication: DYSPNOEA
     Dosage: 08 LITERS/MINUTE
     Route: 045
     Dates: start: 20161006
  5. ATROPIN SULFATE [Concomitant]
     Indication: UPPER RESPIRATORY TRACT CONGESTION
     Dosage: 2 DRP, PRN (1 % SOLUTION, EVERY 4 HOURS)
     Route: 060
     Dates: start: 20161006
  6. LORAZEPAM. [Concomitant]
     Active Substance: LORAZEPAM
     Indication: DYSPNOEA
  7. BISACODYL. [Concomitant]
     Active Substance: BISACODYL
     Indication: CONSTIPATION
     Dosage: 1 DF, PRN (DAILY)
     Route: 054
     Dates: start: 20161006
  8. MORPHINE SULFATE. [Concomitant]
     Active Substance: MORPHINE SULFATE
     Indication: PAIN
     Dosage: 6 MG, PRN
     Route: 042
     Dates: start: 20161006
  9. SALINE [Concomitant]
     Active Substance: SODIUM CHLORIDE
     Indication: FLUSHING
     Dosage: 5 ML, Q8H
     Route: 042
     Dates: start: 20161006

REACTIONS (6)
  - Pleural effusion [Unknown]
  - Sarcoma [Fatal]
  - Ulcer [Recovering/Resolving]
  - Chronic obstructive pulmonary disease [Unknown]
  - Coronary artery disease [Unknown]
  - Terminal state [Unknown]

NARRATIVE: CASE EVENT DATE: 20161006
